FAERS Safety Report 17508695 (Version 1)
Quarter: 2020Q1

REPORT INFORMATION
  Report Type: Spontaneous
  Country: US (occurrence: US)
  Receive Date: 20200306
  Receipt Date: 20200306
  Transmission Date: 20200409
  Serious: No
  Sender: FDA-Public Use
  Company Number: US-GILEAD-2020-0453883

PATIENT
  Age: 44 Year
  Sex: Female

DRUGS (1)
  1. EPCLUSA [Suspect]
     Active Substance: SOFOSBUVIR\VELPATASVIR
     Indication: PRODUCT USED FOR UNKNOWN INDICATION
     Dosage: UNK
     Route: 065
     Dates: start: 20191210

REACTIONS (7)
  - Fatigue [Unknown]
  - Generalised oedema [Unknown]
  - Paraesthesia [Unknown]
  - Myalgia [Unknown]
  - Nausea [Unknown]
  - Asthenia [Unknown]
  - Headache [Unknown]
